FAERS Safety Report 7879679 (Version 4)
Quarter: 2014Q1

REPORT INFORMATION
  Report Type: Spontaneous
  Country: US (occurrence: US)
  Receive Date: 20110331
  Receipt Date: 20140317
  Transmission Date: 20141002
  Serious: Yes (Hospitalization, Other)
  Sender: FDA-Public Use
  Company Number: US-BAYER-2011-027030

PATIENT
  Age: 29 Year
  Sex: Female
  Weight: 113.38 kg

DRUGS (5)
  1. YAZ [Suspect]
     Indication: CONTRACEPTION
     Dosage: UNK
     Dates: start: 200401, end: 2010
  2. YASMIN [Suspect]
     Indication: CONTRACEPTION
     Dosage: UNK
     Dates: start: 200401, end: 2010
  3. OCELLA [Suspect]
     Dosage: UNK
     Dates: start: 2004, end: 2010
  4. HYDROCODONE W/APAP [Concomitant]
     Indication: PAIN
  5. IBUPROFEN [Concomitant]
     Dosage: UNK
     Dates: start: 20070601

REACTIONS (9)
  - Cholecystectomy [None]
  - Cholecystitis acute [None]
  - Pancreatitis [None]
  - Pain [None]
  - Asthenia [None]
  - Anxiety [None]
  - Anhedonia [None]
  - Emotional distress [None]
  - Injury [None]
